FAERS Safety Report 7400797-2 (Version None)
Quarter: 2011Q2

REPORT INFORMATION
  Report Type: 
  Country: None (occurrence: None)
  Receive Date: 20110407
  Receipt Date: 20110404
  Transmission Date: 20111010
  Serious: Yes (Death)
  Sender: FDA-Public Use
  Company Number: D0070916A

PATIENT
  Age: 7 Year
  Sex: Male

DRUGS (1)
  1. VIANI [Suspect]
     Route: 055

REACTIONS (2)
  - METABOLIC DISORDER [None]
  - DIARRHOEA [None]
